FAERS Safety Report 4685389-0 (Version None)
Quarter: 2005Q2

REPORT INFORMATION
  Report Type: 
  Country: None (occurrence: None)
  Receive Date: 20050608
  Receipt Date: 20050302
  Transmission Date: 20051028
  Serious: Yes (Hospitalization)
  Sender: FDA-Public Use
  Company Number: JP-GLAXOSMITHKLINE-B0373647A

PATIENT
  Age: 55 Year
  Sex: Male

DRUGS (15)
  1. EPIVIR [Suspect]
     Indication: HIV INFECTION
     Dosage: 150MG TWICE PER DAY
     Route: 048
     Dates: start: 20010208, end: 20030408
  2. RETROVIR [Suspect]
     Indication: HIV INFECTION
     Dosage: 400MG PER DAY
     Route: 048
     Dates: start: 20010208, end: 20010405
  3. ZIAGEN [Suspect]
     Indication: HIV INFECTION
     Dosage: 600MG PER DAY
     Route: 048
     Dates: start: 20010406, end: 20030408
  4. FORTOVASE [Suspect]
     Indication: HIV INFECTION
     Dosage: 800MG PER DAY
     Route: 048
     Dates: start: 20010208, end: 20010322
  5. NORVIR [Suspect]
     Indication: HIV INFECTION
     Route: 048
     Dates: start: 20010208, end: 20010322
  6. STOCRIN [Suspect]
     Indication: HIV INFECTION
     Dosage: 600MG PER DAY
     Route: 048
     Dates: start: 20010323
  7. KALETRA [Suspect]
     Indication: HIV INFECTION
     Dosage: 6U PER DAY
     Route: 048
     Dates: start: 20020513, end: 20020715
  8. VIRACEPT [Suspect]
     Indication: HIV INFECTION
     Route: 048
     Dates: start: 20030425
  9. BAKTAR [Suspect]
     Indication: INFECTION PROPHYLAXIS
     Dosage: 1TAB SEE DOSAGE TEXT
     Route: 048
     Dates: start: 20001206
  10. VIREAD [Concomitant]
     Indication: HIV INFECTION
     Dosage: 300MG PER DAY
     Route: 048
     Dates: start: 20030409, end: 20030409
  11. GLYCEOL [Concomitant]
     Dosage: 200ML TWICE PER DAY
     Route: 042
     Dates: start: 20001223, end: 20001227
  12. FOY [Concomitant]
     Route: 042
     Dates: start: 20010125, end: 20010128
  13. FUTHAN [Concomitant]
     Route: 042
     Dates: start: 20010208, end: 20010225
  14. BERIZYM [Concomitant]
     Dosage: 1G THREE TIMES PER DAY
     Route: 048
     Dates: start: 20010226
  15. NAFAMOSTAT MESILATE [Concomitant]

REACTIONS (6)
  - ARRHYTHMIA [None]
  - BRADYCARDIA [None]
  - EXTRASYSTOLES [None]
  - SICK SINUS SYNDROME [None]
  - VENTRICULAR EXTRASYSTOLES [None]
  - WHITE BLOOD CELL COUNT DECREASED [None]
